FAERS Safety Report 5369879-3 (Version None)
Quarter: 2007Q2

REPORT INFORMATION
  Report Type: 
  Country: None (occurrence: None)
  Receive Date: 20070621
  Receipt Date: 20070611
  Transmission Date: 20071010
  Serious: Yes (Other)
  Sender: FDA-Public Use
  Company Number: GXKR2007FR03352

PATIENT
  Age: 48 Year
  Sex: Male
  Weight: 97 kg

DRUGS (1)
  1. SPIRAMYCIN+ METRONIDAZOLE SANDOZ (NGX)( METRONIDAZOLE, SPIRAMYCIN) FIL [Suspect]
     Dosage: 250 MG, 6QD, ORAL
     Route: 048

REACTIONS (7)
  - ASTHENIA [None]
  - FORMICATION [None]
  - MEDICATION ERROR [None]
  - OVERDOSE [None]
  - PENILE HAEMORRHAGE [None]
  - PRURITUS [None]
  - RASH [None]
